FAERS Safety Report 9791862 (Version 1)
Quarter: 2014Q1

REPORT INFORMATION
  Report Type: Spontaneous
  Country: US (occurrence: US)
  Receive Date: 20140102
  Receipt Date: 20140102
  Transmission Date: 20141002
  Serious: Yes (Other)
  Sender: FDA-Public Use
  Company Number: US-PFIZER INC-2013372514

PATIENT
  Age: 27 Year
  Sex: Male
  Weight: 181.41 kg

DRUGS (2)
  1. VIAGRA [Suspect]
     Indication: ERECTILE DYSFUNCTION
     Dosage: UNK, AS NEEDED
     Route: 048
     Dates: start: 2013
  2. VIAGRA [Suspect]
     Dosage: 9 DF, UNK
     Route: 048
     Dates: start: 2013

REACTIONS (2)
  - Overdose [Unknown]
  - Erection increased [Unknown]
